FAERS Safety Report 4750309-7 (Version None)
Quarter: 2005Q3

REPORT INFORMATION
  Report Type: 
  Country: None (occurrence: None)
  Receive Date: 20050818
  Receipt Date: 20050805
  Transmission Date: 20060218
  Serious: Yes (Hospitalization)
  Sender: FDA-Public Use
  Company Number: 2005EU001795

PATIENT
  Age: 61 Year
  Sex: Male

DRUGS (9)
  1. FK506 (TACROLIMUS CAPSULES) CAPSULE [Suspect]
     Indication: LIVER TRANSPLANT
     Dosage: 3.00 MG, ORAL
     Route: 048
     Dates: start: 20050607
  2. DACLIZUMAB  (DACLIZUMAB) [Suspect]
     Indication: LIVER TRANSPLANT
     Dosage: 150.00 MG, UID/QD
     Dates: start: 20050603, end: 20050610
  3. MYCOPHENOLATE MOFETIL (MYCOPHENOLATE  MOFETIL) [Suspect]
     Indication: LIVER TRANSPLANT
     Dosage: 1000.00,BID, IV NOS
     Route: 042
     Dates: start: 20050603, end: 20050607
  4. MYCOPHENOLATE MOFETIL (MYCOPHENOLATE  MOFETIL) [Suspect]
     Indication: LIVER TRANSPLANT
     Dosage: 1000.00,BID, IV NOS
     Route: 042
     Dates: start: 20050608
  5. METHYLPREDNISOLONE (METHYLPRENDISOLONE) [Suspect]
     Indication: LIVER TRANSPLANT
     Dosage: 100.00 MG, BID
     Dates: start: 20050603, end: 20050608
  6. PREDNISONE [Suspect]
     Indication: LIVER TRANSPLANT
     Dosage: 10.00 MG, UID/QD
     Dates: start: 20050609
  7. INSULIN [Concomitant]
  8. DIGOXIN [Concomitant]
  9. MYCOSTATIN [Concomitant]

REACTIONS (1)
  - PERITONEAL HAEMORRHAGE [None]
